FAERS Safety Report 7088808-8 (Version None)
Quarter: 2010Q4

REPORT INFORMATION
  Report Type: 
  Country: None (occurrence: None)
  Receive Date: 20101108
  Receipt Date: 20101026
  Transmission Date: 20110411
  Serious: Yes (Hospitalization)
  Sender: FDA-Public Use
  Company Number: PHHY2010NL62703

PATIENT
  Sex: Male

DRUGS (6)
  1. ZOMETA [Suspect]
     Dosage: 4 MG/5 ML, CONCENTRATE FOR SOLUTION FOR IV INFUSION
     Dates: start: 20100413
  2. ZOMETA [Suspect]
     Dosage: 4 MG/5ML
     Dates: start: 20100803
  3. ZOMETA [Suspect]
     Dosage: 4 MG/5ML
     Dates: start: 20100921, end: 20101026
  4. THYRAX [Concomitant]
  5. EFFEXOR [Concomitant]
  6. PREDNISONE [Concomitant]

REACTIONS (2)
  - BONE PAIN [None]
  - CHEST DISCOMFORT [None]
